FAERS Safety Report 7406003-7 (Version None)
Quarter: 2011Q2

REPORT INFORMATION
  Report Type: 
  Country: None (occurrence: None)
  Receive Date: 20110411
  Receipt Date: 20110407
  Transmission Date: 20111010
  Serious: Yes (Hospitalization)
  Sender: FDA-Public Use
  Company Number: A0886591A

PATIENT
  Age: 62 Year
  Sex: Female
  Weight: 70.5 kg

DRUGS (2)
  1. AVANDIA [Suspect]
     Route: 048
     Dates: end: 20051101
  2. AVANDAMET [Suspect]
     Route: 048

REACTIONS (3)
  - CARDIAC FAILURE [None]
  - IMPLANTABLE DEFIBRILLATOR INSERTION [None]
  - CARDIAC PACEMAKER INSERTION [None]
